FAERS Safety Report 21001491 (Version 1)
Quarter: 2022Q2

REPORT INFORMATION
  Report Type: Other
  Country: None (occurrence: US)
  Receive Date: 20220624
  Receipt Date: 20220624
  Transmission Date: 20220721
  Serious: Yes (Death)
  Sender: FDA-Public Use
  Company Number: US-MLV Pharma LLC-2130226

PATIENT
  Sex: Male

DRUGS (8)
  1. CARISOPRODOL [Suspect]
     Active Substance: CARISOPRODOL
     Indication: Back pain
     Route: 065
  2. DESMETRAMADOL [Suspect]
     Active Substance: DESMETRAMADOL
     Route: 065
  3. GABAPENTIN [Suspect]
     Active Substance: GABAPENTIN
     Route: 065
  4. HYDROCODONE BITARTRATE [Suspect]
     Active Substance: HYDROCODONE BITARTRATE
     Route: 065
  5. MEPROBAMATE [Suspect]
     Active Substance: MEPROBAMATE
     Route: 065
  6. MORPHINE SULFATE [Suspect]
     Active Substance: MORPHINE SULFATE
     Route: 065
  7. ACETAMINOPHEN [Suspect]
     Active Substance: ACETAMINOPHEN
     Route: 065
  8. TRAMADOL [Suspect]
     Active Substance: TRAMADOL
     Route: 065

REACTIONS (2)
  - Accidental overdose [Fatal]
  - Toxicity to various agents [Fatal]
